FAERS Safety Report 8001686-5 (Version None)
Quarter: 2011Q4

REPORT INFORMATION
  Report Type: 
  Country: None (occurrence: None)
  Receive Date: 20111222
  Receipt Date: 20111221
  Transmission Date: 20120403
  Serious: Yes (Other)
  Sender: FDA-Public Use
  Company Number: CA-ROCHE-1023989

PATIENT
  Sex: Male

DRUGS (3)
  1. XELODA [Suspect]
     Dosage: QPM
     Dates: end: 20111218
  2. XELODA [Suspect]
     Indication: RECTAL CANCER
     Dosage: FREQUENCY: QAM
     Route: 048
     Dates: start: 20111016
  3. XELODA [Suspect]
     Dates: start: 20111218

REACTIONS (2)
  - PENILE ERYTHEMA [None]
  - PALMAR-PLANTAR ERYTHRODYSAESTHESIA SYNDROME [None]
